FAERS Safety Report 22070603 (Version 2)
Quarter: 2023Q2

REPORT INFORMATION
  Report Type: Spontaneous
  Country: HR (occurrence: HR)
  Receive Date: 20230307
  Receipt Date: 20230410
  Transmission Date: 20230721
  Serious: Yes (Other)
  Sender: FDA-Public Use
  Company Number: HR-PFIZER INC-PV202300040761

PATIENT
  Age: 25 Year
  Sex: Male

DRUGS (3)
  1. MYLOTARG [Suspect]
     Active Substance: GEMTUZUMAB OZOGAMICIN
     Indication: Acute myeloid leukaemia
     Dosage: 3 MG/M2
     Dates: start: 20220524
  2. CYTARABINE [Suspect]
     Active Substance: CYTARABINE
     Indication: Acute myeloid leukaemia
     Dosage: UNK
  3. DAUNORUBICIN HYDROCHLORIDE [Suspect]
     Active Substance: DAUNORUBICIN HYDROCHLORIDE
     Indication: Acute myeloid leukaemia
     Dosage: UNK

REACTIONS (6)
  - Febrile neutropenia [Unknown]
  - Device related sepsis [Unknown]
  - Cytopenia [Unknown]
  - Klebsiella sepsis [Recovered/Resolved]
  - COVID-19 [Recovered/Resolved]
  - Proteus test positive [Unknown]

NARRATIVE: CASE EVENT DATE: 20220101
